FAERS Safety Report 9717331 (Version 2)
Quarter: 2013Q4

REPORT INFORMATION
  Report Type: Spontaneous
  Country: FR (occurrence: FR)
  Receive Date: 20131127
  Receipt Date: 20131230
  Transmission Date: 20140711
  Serious: Yes (Other)
  Sender: FDA-Public Use
  Company Number: FR-ACTAVIS-2013-21887

PATIENT
  Age: 14 Year
  Sex: Female

DRUGS (3)
  1. PARACETAMOL (UNKNOWN) [Suspect]
     Indication: PRODUCT USED FOR UNKNOWN INDICATION
     Dosage: 8 G, TOTAL
     Route: 065
  2. DEBRIDAT /00465201/ [Suspect]
     Indication: PRODUCT USED FOR UNKNOWN INDICATION
     Dosage: UNKNOWN
     Route: 065
  3. SPASFON /00765801/ [Suspect]
     Indication: PRODUCT USED FOR UNKNOWN INDICATION
     Dosage: UNKNOWN
     Route: 065

REACTIONS (3)
  - Convulsion [Unknown]
  - Vomiting [Unknown]
  - Overdose [Unknown]
